FAERS Safety Report 25457561 (Version 1)
Quarter: 2025Q2

REPORT INFORMATION
  Report Type: Spontaneous
  Country: US (occurrence: US)
  Receive Date: 20250619
  Receipt Date: 20250619
  Transmission Date: 20250716
  Serious: Yes (Hospitalization)
  Sender: MERCK SHARP & DOHME LLC
  Company Number: US-009507513-2295238

PATIENT
  Age: 65 Year
  Sex: Female
  Weight: 64.85 kg

DRUGS (20)
  1. PEMBROLIZUMAB [Suspect]
     Active Substance: PEMBROLIZUMAB
     Indication: Metastases to central nervous system
     Route: 042
  2. PALBOCICLIB [Suspect]
     Active Substance: PALBOCICLIB
     Indication: Metastases to central nervous system
     Route: 048
     Dates: start: 20250429
  3. TYLENOL WITH CODEINE [Concomitant]
     Active Substance: ACETAMINOPHEN\CODEINE PHOSPHATE
  4. LIPITOR [Concomitant]
     Active Substance: ATORVASTATIN CALCIUM
  5. VITAMIN D3 [Concomitant]
     Active Substance: CHOLECALCIFEROL
  6. CODEINE [Concomitant]
     Active Substance: CODEINE
  7. DECADRON [Concomitant]
     Active Substance: DEXAMETHASONE
  8. DIABETA [Concomitant]
     Active Substance: GLYBURIDE
  9. KEPPRA [Concomitant]
     Active Substance: LEVETIRACETAM
  10. LISINOPRIL [Concomitant]
     Active Substance: LISINOPRIL
  11. ZESTRIL [Concomitant]
     Active Substance: LISINOPRIL
  12. IMODIUM [Concomitant]
     Active Substance: LOPERAMIDE HYDROCHLORIDE
  13. MAGNESIUM GLYCINATE [Concomitant]
     Active Substance: MAGNESIUM GLYCINATE
  14. GLUCOPHAGE XR [Concomitant]
     Active Substance: METFORMIN HYDROCHLORIDE
  15. COMPAZINE [Concomitant]
     Active Substance: PROCHLORPERAZINE MALEATE
  16. PERI_COLACE [Concomitant]
  17. ADMELOG [Concomitant]
     Active Substance: INSULIN LISPRO
  18. HUMALOG [Concomitant]
     Active Substance: INSULIN LISPRO
  19. DELTASONE [Concomitant]
     Active Substance: PREDNISONE
  20. HEPARIN [Concomitant]
     Active Substance: HEPARIN SODIUM

REACTIONS (3)
  - Blood glucose increased [Unknown]
  - Fall [Unknown]
  - Neutropenia [Unknown]

NARRATIVE: CASE EVENT DATE: 20250523
